FAERS Safety Report 4902006-2 (Version None)
Quarter: 2006Q1

REPORT INFORMATION
  Report Type: 
  Country: None (occurrence: None)
  Receive Date: 20060201
  Receipt Date: 20060201
  Transmission Date: 20060701
  Serious: Yes (Hospitalization)
  Sender: FDA-Public Use
  Company Number: None

PATIENT
  Age: 47 Year
  Weight: 93.441 kg

DRUGS (4)
  1. ERBITUX [Suspect]
     Indication: PANCREATIC CARCINOMA
     Dosage: 868 MG IV OVER 2 HRS
     Route: 042
     Dates: start: 20060130
  2. LORAZEPAM [Concomitant]
  3. AMBIEN [Concomitant]
  4. PRILOSEC [Concomitant]

REACTIONS (3)
  - ANAPHYLACTIC REACTION [None]
  - HYPOTENSION [None]
  - INFUSION RELATED REACTION [None]
